FAERS Safety Report 5742571-9 (Version None)
Quarter: 2008Q2

REPORT INFORMATION
  Report Type: 
  Country: None (occurrence: None)
  Receive Date: 20080515
  Receipt Date: 20080515
  Transmission Date: 20081010
  Serious: Yes (Disabling, Other)
  Sender: FDA-Public Use
  Company Number: None

PATIENT
  Age: 61 Year
  Sex: Male
  Weight: 70.3075 kg

DRUGS (1)
  1. CRESTOR [Suspect]
     Dosage: 1 PILL  10 MG     ONCE A DAY  MOUTH
     Route: 048
     Dates: start: 20040701

REACTIONS (7)
  - BLOOD PRESSURE INCREASED [None]
  - EYE DISORDER [None]
  - HEART RATE INCREASED [None]
  - HYPERSENSITIVITY [None]
  - SKIN EXFOLIATION [None]
  - SKIN IRRITATION [None]
  - SKIN REACTION [None]
